FAERS Safety Report 6132068-9 (Version None)
Quarter: 2009Q1

REPORT INFORMATION
  Report Type: 
  Country: None (occurrence: None)
  Receive Date: 20090325
  Receipt Date: 20090319
  Transmission Date: 20090719
  Serious: Yes (Hospitalization)
  Sender: FDA-Public Use
  Company Number: FR-ROCHE-623016

PATIENT
  Sex: Female

DRUGS (10)
  1. ROCEPHIN [Suspect]
     Dosage: STOP DATE: 16-20 JANUARY 2009.
     Route: 042
     Dates: start: 20090112
  2. DOXYCYCLINE [Suspect]
     Dosage: DRUG: DOXYCYCLINE SANDOZ
     Route: 048
     Dates: start: 20090112, end: 20090120
  3. DEPAKENE [Suspect]
     Indication: EPILEPSY
     Route: 048
  4. DI ANTALVIC [Suspect]
     Route: 048
     Dates: start: 20090111, end: 20090120
  5. TAMIK [Concomitant]
  6. PREVISCAN [Concomitant]
  7. NORSET [Concomitant]
  8. THERALENE [Concomitant]
  9. XANAX [Concomitant]
  10. OFLOXACIN [Concomitant]

REACTIONS (1)
  - CHOLESTASIS [None]
